FAERS Safety Report 4485120-8 (Version None)
Quarter: 2004Q4

REPORT INFORMATION
  Report Type: 
  Country: None (occurrence: None)
  Receive Date: 20041026
  Receipt Date: 20031027
  Transmission Date: 20050328
  Serious: No
  Sender: FDA-Public Use
  Company Number: US-BRISTOL-MYERS SQUIBB COMPANY-12419909

PATIENT
  Age: 56 Year
  Sex: Female

DRUGS (5)
  1. GLUCOPHAGE XR [Suspect]
     Indication: DIABETES MELLITUS
     Route: 048
  2. PREMARIN [Concomitant]
  3. ZOCOR [Concomitant]
  4. CELEXA [Concomitant]
  5. ALLEGRA [Concomitant]

REACTIONS (1)
  - DYSPEPSIA [None]
